FAERS Safety Report 4645617-4 (Version None)
Quarter: 2005Q2

REPORT INFORMATION
  Report Type: 
  Country: None (occurrence: None)
  Receive Date: 20050331
  Receipt Date: 20041214
  Transmission Date: 20051028
  Serious: No
  Sender: FDA-Public Use
  Company Number: 04P-163-0283170

PATIENT
  Age: 35 Year
  Sex: Female
  Weight: 136.3 kg

DRUGS (5)
  1. HUMIRA [Suspect]
     Indication: RHEUMATOID ARTHRITIS
     Dosage: 40 MG, 1 IN 2 WK, SUBCUTANEOUS, 40 MG IN 2 WK SUBCUTANEOUS
     Route: 058
     Dates: start: 20030101, end: 20040901
  2. HUMIRA [Suspect]
     Indication: RHEUMATOID ARTHRITIS
     Dosage: 40 MG, 1 IN 2 WK, SUBCUTANEOUS, 40 MG IN 2 WK SUBCUTANEOUS
     Route: 058
     Dates: start: 20041130
  3. METHOTREXATE [Concomitant]
  4. ROFECOXIB [Concomitant]
  5. BUCINDOLOL HYDROCHLORIDE [Concomitant]

REACTIONS (1)
  - RHEUMATOID ARTHRITIS [None]
